FAERS Safety Report 10861000 (Version 1)
Quarter: 2015Q1

REPORT INFORMATION
  Report Type: Spontaneous
  Country: US (occurrence: None)
  Receive Date: 20150218
  Receipt Date: 20150218
  Transmission Date: 20150721
  Serious: No
  Sender: FDA-Public Use
  Company Number: None

PATIENT
  Age: 71 Year
  Sex: Female
  Weight: 50.8 kg

DRUGS (9)
  1. QUETIAPINE 200MG [Suspect]
     Active Substance: QUETIAPINE
     Indication: MENTAL STATUS CHANGES
     Dosage: 1 TABLET, TID, ORAL
     Route: 048
  2. QUETIAPINE 50 MG [Concomitant]
     Active Substance: QUETIAPINE
  3. VITAMIN D3 [Concomitant]
     Active Substance: CHOLECALCIFEROL
  4. QUETIAPINE 200 MG (QUETIAPINE) [Concomitant]
     Active Substance: QUETIAPINE
  5. INSTLL ONE DROP [Concomitant]
  6. PRAVASTATIN [Concomitant]
     Active Substance: PRAVASTATIN\PRAVASTATIN SODIUM
  7. LATANOPROST. [Concomitant]
     Active Substance: LATANOPROST
  8. SOURCE CALCIUM [Concomitant]
  9. OMEPRAZOLE. [Concomitant]
     Active Substance: OMEPRAZOLE

REACTIONS (1)
  - Thrombocytopenia [None]

NARRATIVE: CASE EVENT DATE: 20150212
